FAERS Safety Report 8074277-8 (Version None)
Quarter: 2012Q1

REPORT INFORMATION
  Report Type: 
  Country: None (occurrence: None)
  Receive Date: 20120126
  Receipt Date: 20120123
  Transmission Date: 20120608
  Serious: Yes (Hospitalization)
  Sender: FDA-Public Use
  Company Number: US-MYLANLABS-2011S1025314

PATIENT
  Age: 75 Year
  Sex: Female
  Weight: 63.5 kg

DRUGS (5)
  1. SOTRADECOL [Suspect]
     Indication: SCLEROTHERAPY
     Route: 042
     Dates: start: 20111019, end: 20111019
  2. METOPROLOL TARTRATE [Concomitant]
     Indication: HYPERTENSION
  3. SOTRADECOL [Suspect]
     Indication: VARICOSE VEIN
     Route: 042
     Dates: start: 20111019, end: 20111019
  4. ANTIGLAUCOMA PREPARATIONS AND MIOTICS [Concomitant]
     Indication: GLAUCOMA
  5. LEVOXYL [Concomitant]
     Indication: HYPOTHYROIDISM

REACTIONS (9)
  - INJECTION SITE VESICLES [None]
  - CELLULITIS [None]
  - INJECTION SITE SWELLING [None]
  - INJECTION SITE PAIN [None]
  - VOMITING [None]
  - INJECTION SITE INJURY [None]
  - SKIN NECROSIS [None]
  - INJECTION SITE HAEMATOMA [None]
  - PAIN IN EXTREMITY [None]
